FAERS Safety Report 11926400 (Version 3)
Quarter: 2016Q1

REPORT INFORMATION
  Report Type: Spontaneous
  Country: US (occurrence: US)
  Receive Date: 20160119
  Receipt Date: 20160205
  Transmission Date: 20160526
  Serious: Yes (Hospitalization, Other)
  Sender: FDA-Public Use
  Company Number: US-AMGEN-USASP2016003346

PATIENT
  Age: 58 Year
  Sex: Male

DRUGS (3)
  1. FLUOCINONIDE. [Concomitant]
     Active Substance: FLUOCINONIDE
     Indication: PSORIASIS
     Dosage: UNK UNK, AS NECESSARY
     Route: 061
  2. TACLONEX [Concomitant]
     Active Substance: BETAMETHASONE DIPROPIONATE\CALCIPOTRIENE\CALCIPOTRIENE HYDRATE
     Indication: PSORIASIS
     Dosage: UNK UNK, AS NECESSARY
     Route: 061
  3. ENBREL [Suspect]
     Active Substance: ETANERCEPT
     Indication: PSORIASIS
     Dosage: 50 MG, 2 TIMES/WK
     Route: 058
     Dates: start: 2007, end: 201512

REACTIONS (4)
  - Alpha haemolytic streptococcal infection [Unknown]
  - Clostridium difficile infection [Recovered/Resolved]
  - Hepatic enzyme increased [Unknown]
  - Abscess drainage [Recovered/Resolved]

NARRATIVE: CASE EVENT DATE: 201512
